FAERS Safety Report 8681040 (Version 4)
Quarter: 2012Q4

REPORT INFORMATION
  Report Type: 
  Country: US (occurrence: US)
  Receive Date: 20120724
  Receipt Date: 20121107
  Transmission Date: 20130627
  Serious: Yes (Other)
  Sender: FDA-Public Use
  Company Number: US-PFIZER INC-2012176115

PATIENT
  Sex: Female

DRUGS (4)
  1. EFFEXOR XR [Suspect]
     Indication: PAIN
     Dosage: 1 capsule a day
  2. LYRICA [Suspect]
     Dosage: UNK
  3. EFFEXOR [Suspect]
     Dosage: at 10am
  4. PANTOPAC [Suspect]
     Indication: SPINAL MYELOGRAM
     Dosage: UNK

REACTIONS (11)
  - Drug dependence [Unknown]
  - Abasia [Unknown]
  - Withdrawal syndrome [Unknown]
  - Arachnoiditis [Unknown]
  - Malaise [Unknown]
  - Drug ineffective [Unknown]
  - Off label use [Unknown]
  - Neuralgia [Unknown]
  - Dizziness [Unknown]
  - Nausea [Unknown]
  - Scar [None]
